FAERS Safety Report 7472784-X (Version None)
Quarter: 2011Q2

REPORT INFORMATION
  Report Type: 
  Country: None (occurrence: None)
  Receive Date: 20110511
  Receipt Date: 20110504
  Transmission Date: 20111010
  Serious: Yes (Hospitalization, Other)
  Sender: FDA-Public Use
  Company Number: US-ASTRAZENECA-2011SE26230

PATIENT
  Age: 70 Year
  Sex: Female

DRUGS (6)
  1. CRESTOR [Suspect]
     Route: 048
  2. NEXIUM [Suspect]
     Dosage: TWO PER DAY
     Route: 048
  3. RHINOCORT [Suspect]
     Route: 045
  4. NEXIUM [Suspect]
     Dosage: ONE PER DAY
     Route: 048
  5. ACCOLATE [Suspect]
     Route: 048
  6. NEXIUM [Suspect]
     Route: 048

REACTIONS (8)
  - FOOT OPERATION [None]
  - DRUG INEFFECTIVE [None]
  - OROPHARYNGEAL BLISTERING [None]
  - MUSCULOSKELETAL DISCOMFORT [None]
  - KNEE OPERATION [None]
  - DYSGEUSIA [None]
  - GASTROOESOPHAGEAL REFLUX DISEASE [None]
  - STOMATITIS [None]
